FAERS Safety Report 8765542 (Version 1)
Quarter: 2012Q4

REPORT INFORMATION
  Report Type: 
  Country: US (occurrence: US)
  Receive Date: 20120903
  Receipt Date: 20120903
  Transmission Date: 20130627
  Serious: No
  Sender: FDA-Public Use
  Company Number: US-B.I. PHARMACEUTICALS,INC./RIDGEFIELD-2012-BP-20931BP

PATIENT
  Age: 54 Year
  Sex: Female
  Weight: 58 kg

DRUGS (10)
  1. SPIRIVA [Suspect]
     Indication: CHRONIC OBSTRUCTIVE PULMONARY DISEASE
     Dosage: 18 mcg
     Route: 055
     Dates: start: 201104
  2. SPIRIVA [Suspect]
     Route: 048
     Dates: start: 20120827, end: 20120827
  3. POTASSIUM [Concomitant]
     Indication: SUPPLEMENTATION THERAPY
     Dosage: 10 mEq
     Route: 048
     Dates: start: 201204
  4. MELOXICAM [Concomitant]
     Indication: MUSCLE RELAXANT THERAPY
     Dosage: 7.5 mg
     Route: 048
     Dates: start: 201108
  5. CYCLOBEN [Concomitant]
     Indication: MUSCLE RELAXANT THERAPY
     Dosage: 10 mg
     Route: 048
     Dates: start: 201108
  6. BENACAR [Concomitant]
     Indication: BLOOD PRESSURE ABNORMAL
     Dosage: 20 mg
     Route: 048
     Dates: start: 20120821
  7. AMITRIPTYLINE [Concomitant]
     Dosage: 25 mg
     Route: 048
  8. XANAX [Concomitant]
     Dosage: 0.5 mg
     Route: 048
  9. LORTAB [Concomitant]
     Indication: BACK PAIN
     Route: 048
  10. PRO AIR [Concomitant]
     Indication: DYSPNOEA
     Route: 055

REACTIONS (1)
  - Incorrect route of drug administration [Recovered/Resolved]
